FAERS Safety Report 5263772-2 (Version None)
Quarter: 2007Q1

REPORT INFORMATION
  Report Type: 
  Country: None (occurrence: None)
  Receive Date: 20061213
  Receipt Date: 20030910
  Transmission Date: 20070707
  Serious: Yes (Other)
  Sender: FDA-Public Use
  Company Number: 2003UW11568

PATIENT
  Age: 74 Year
  Sex: Female
  Weight: 56.6996 kg

DRUGS (10)
  1. IRESSA [Suspect]
     Indication: NON-SMALL CELL LUNG CANCER
     Dosage: 250 MG
     Dates: start: 20030818, end: 20030905
  2. IRESSA [Suspect]
     Indication: NON-SMALL CELL LUNG CANCER
     Dosage: 250 MG
     Dates: start: 20030916
  3. PREDNISONE [Concomitant]
  4. HYZAAR [Concomitant]
  5. ATENOLOL [Concomitant]
  6. FUROSEMIDE [Concomitant]
  7. NEURONTIN [Concomitant]
  8. TRAMADOL HCL [Concomitant]
  9. AMOXICILLIN [Concomitant]
  10. AMITRIPTYLINE HCL [Concomitant]

REACTIONS (6)
  - ASTHENIA [None]
  - CHAPPED LIPS [None]
  - LIP DRY [None]
  - LIP HAEMORRHAGE [None]
  - RASH [None]
  - STOMATITIS [None]
